FAERS Safety Report 22094653 (Version 1)
Quarter: 2023Q1

REPORT INFORMATION
  Report Type: Spontaneous
  Country: US (occurrence: US)
  Receive Date: 20230314
  Receipt Date: 20230314
  Transmission Date: 20230418
  Serious: No
  Sender: FDA-Public Use
  Company Number: US-TEVA-2023-US-2861057

PATIENT
  Age: 53 Year
  Sex: Male

DRUGS (1)
  1. AMPHETAMINE SULFATE\DEXTROAMPHETAMINE [Suspect]
     Active Substance: AMPHETAMINE SULFATE\DEXTROAMPHETAMINE
     Indication: Product used for unknown indication
     Dosage: 7.5 MG TO 60 MG PER DAY
     Route: 065
     Dates: start: 2013

REACTIONS (2)
  - Dyspnoea [Unknown]
  - Drug effect less than expected [Unknown]
